FAERS Safety Report 21794870 (Version 1)
Quarter: 2022Q4

REPORT INFORMATION
  Report Type: Report from Study
  Country: US (occurrence: US)
  Receive Date: 20221229
  Receipt Date: 20221229
  Transmission Date: 20230113
  Serious: No
  Sender: FDA-Public Use
  Company Number: US-ABBVIE-4252798

PATIENT
  Sex: Male

DRUGS (1)
  1. VENCLEXTA [Suspect]
     Active Substance: VENETOCLAX
     Indication: Chronic lymphocytic leukaemia
     Dosage: EVENT ONSET  AND CESSATION OF ACCIDENTALLY ATE A PIECE OF GRAPEFRUIT, WHOLE BACK BROKE OUT WAS 2022.
     Route: 048
     Dates: start: 202201

REACTIONS (2)
  - Rash [Recovered/Resolved]
  - Adverse food reaction [Recovered/Resolved]
